FAERS Safety Report 8351089 (Version 3)
Quarter: 2013Q2

REPORT INFORMATION
  Report Type: Report from Study
  Country: US (occurrence: US)
  Receive Date: 20120124
  Receipt Date: 20130426
  Transmission Date: 20140414
  Serious: Yes (Death, Hospitalization)
  Sender: FDA-Public Use
  Company Number: US-ROCHE-1032471

PATIENT
  Age: 54 Year
  Sex: Female
  Weight: 56.3 kg

DRUGS (2)
  1. XELODA [Suspect]
     Indication: BREAST CANCER METASTATIC
     Route: 048
     Dates: start: 20111212
  2. XELODA [Suspect]
     Route: 048
     Dates: start: 20121204

REACTIONS (5)
  - Breast cancer metastatic [Fatal]
  - Pneumothorax [Unknown]
  - Pleural effusion [Unknown]
  - Pain in extremity [Not Recovered/Not Resolved]
  - Skin exfoliation [Not Recovered/Not Resolved]
